FAERS Safety Report 4928729-7 (Version None)
Quarter: 2006Q1

REPORT INFORMATION
  Report Type: 
  Country: None (occurrence: None)
  Receive Date: 20060227
  Receipt Date: 20060227
  Transmission Date: 20060701
  Serious: No
  Sender: FDA-Public Use
  Company Number: None

PATIENT
  Sex: Male
  Weight: 112 kg

DRUGS (1)
  1. PEGASYS [Suspect]
     Dosage: 189 MCG/ML ONCE A WEEK SQ
     Route: 058

REACTIONS (1)
  - WHITE BLOOD CELL COUNT DECREASED [None]
